FAERS Safety Report 18485676 (Version 5)
Quarter: 2021Q3

REPORT INFORMATION
  Report Type: Spontaneous
  Country: DE (occurrence: DE)
  Receive Date: 20201110
  Receipt Date: 20210707
  Transmission Date: 20211014
  Serious: Yes (Other)
  Sender: FDA-Public Use
  Company Number: NVSC2020DE191259

PATIENT
  Sex: Male

DRUGS (16)
  1. VALSARTAN ? 1 A PHARMA 160 MG FILMTABLETTEN [Suspect]
     Active Substance: VALSARTAN
     Dosage: 160 MG
     Route: 065
     Dates: start: 20140724, end: 201807
  2. VALSARTAN ? 1 A PHARMA 160 MG FILMTABLETTEN [Suspect]
     Active Substance: VALSARTAN
     Dosage: 160 MG
     Route: 065
     Dates: start: 20170418, end: 201807
  3. VALSARTAN ? 1 A PHARMA 160 MG FILMTABLETTEN [Suspect]
     Active Substance: VALSARTAN
     Dosage: 160 MG
     Route: 065
     Dates: start: 20180515, end: 201807
  4. VALSARTAN ? 1 A PHARMA 160 MG FILMTABLETTEN [Suspect]
     Active Substance: VALSARTAN
     Indication: HYPERTENSION
     Dosage: 160 MG
     Route: 065
     Dates: start: 20140102
  5. VALSARTAN ? 1 A PHARMA 160 MG FILMTABLETTEN [Suspect]
     Active Substance: VALSARTAN
     Dosage: 160 MG
     Route: 065
     Dates: start: 20150519, end: 201807
  6. VALSARTAN ? 1 A PHARMA 160 MG FILMTABLETTEN [Suspect]
     Active Substance: VALSARTAN
     Dosage: 160 MG
     Route: 065
     Dates: start: 20181204
  7. VALSARTAN. [Concomitant]
     Active Substance: VALSARTAN
     Indication: PRODUCT USED FOR UNKNOWN INDICATION
     Dosage: UNK
     Route: 065
  8. VALSARTAN ? 1 A PHARMA 160 MG FILMTABLETTEN [Suspect]
     Active Substance: VALSARTAN
     Dosage: 160 MG
     Route: 065
     Dates: start: 20160829, end: 201807
  9. HCT [Concomitant]
     Active Substance: HYDROCHLOROTHIAZIDE
     Indication: PRODUCT USED FOR UNKNOWN INDICATION
     Dosage: UNK
     Route: 065
     Dates: start: 2014
  10. VALSARTAN ? 1 A PHARMA 160 MG FILMTABLETTEN [Suspect]
     Active Substance: VALSARTAN
     Dosage: 160 MG
     Route: 065
     Dates: start: 20140325, end: 201807
  11. VALSARTAN ? 1 A PHARMA 160 MG FILMTABLETTEN [Suspect]
     Active Substance: VALSARTAN
     Dosage: 160 MG
     Route: 065
     Dates: start: 20150209, end: 201807
  12. VALSARTAN ? 1 A PHARMA 160 MG FILMTABLETTEN [Suspect]
     Active Substance: VALSARTAN
     Dosage: 160 MG
     Route: 065
     Dates: start: 20141103, end: 201807
  13. VALSARTAN ? 1 A PHARMA 160 MG FILMTABLETTEN [Suspect]
     Active Substance: VALSARTAN
     Dosage: 160 MG
     Route: 065
     Dates: start: 20171030, end: 201807
  14. VALSARTAN ? 1 A PHARMA PLUS [Suspect]
     Active Substance: HYDROCHLOROTHIAZIDE\VALSARTAN
     Indication: HYPERTENSION
     Dosage: UNK (320 MG /25 MG)
     Route: 065
     Dates: start: 20150827, end: 201603
  15. VALSARTAN ? 1 A PHARMA 160 MG FILMTABLETTEN [Suspect]
     Active Substance: VALSARTAN
     Dosage: 160 MG
     Route: 065
     Dates: start: 20160321, end: 201807
  16. VALSARTAN ? 1 A PHARMA PLUS [Suspect]
     Active Substance: HYDROCHLOROTHIAZIDE\VALSARTAN
     Dosage: UNK (320 MG /25 MG)
     Route: 065
     Dates: start: 20160310

REACTIONS (25)
  - Arthralgia [Unknown]
  - Tendon disorder [Unknown]
  - Diverticulum [Unknown]
  - Headache [Unknown]
  - Heart rate increased [Unknown]
  - Emotional distress [Unknown]
  - Fear of disease [Unknown]
  - Abdominal pain lower [Unknown]
  - Spinal osteoarthritis [Unknown]
  - Psoriasis [Unknown]
  - Rhinorrhoea [Unknown]
  - Joint swelling [Unknown]
  - Anal erythema [Unknown]
  - Diabetes mellitus [Unknown]
  - Anal eczema [Unknown]
  - Neck pain [Unknown]
  - Pruritus [Unknown]
  - Pharyngeal erythema [Unknown]
  - Quality of life decreased [Unknown]
  - Ear discomfort [Unknown]
  - Anxiety [Unknown]
  - Feeling abnormal [Unknown]
  - Erythema [Unknown]
  - Skin oedema [Unknown]
  - Cough [Unknown]

NARRATIVE: CASE EVENT DATE: 2015
